FAERS Safety Report 8489879-4 (Version None)
Quarter: 2012Q3

REPORT INFORMATION
  Report Type: 
  Country: None (occurrence: None)
  Receive Date: 20120705
  Receipt Date: 20120628
  Transmission Date: 20120928
  Serious: Yes (Other)
  Sender: FDA-Public Use
  Company Number: PHHY2012IT056571

PATIENT
  Sex: Female

DRUGS (1)
  1. KETOPROFEN [Suspect]
     Indication: PAIN
     Dosage: 1 DF, POSOLOGIC UNIT
     Route: 030
     Dates: start: 20120501

REACTIONS (7)
  - SMALL INTESTINAL HAEMORRHAGE [None]
  - MELAENA [None]
  - EROSIVE DUODENITIS [None]
  - OESOPHAGITIS [None]
  - GASTRIC ULCER [None]
  - GASTRITIS EROSIVE [None]
  - CARDIAC DISORDER [None]
